FAERS Safety Report 5333606-6 (Version None)
Quarter: 2007Q2

REPORT INFORMATION
  Report Type: 
  Country: None (occurrence: None)
  Receive Date: 20070524
  Receipt Date: 20070515
  Transmission Date: 20071010
  Serious: Yes (Other)
  Sender: FDA-Public Use
  Company Number: ES-AMGEN-UK223521

PATIENT
  Age: 56 Year
  Sex: Female

DRUGS (12)
  1. MIMPARA [Suspect]
     Indication: HYPERPARATHYROIDISM SECONDARY
     Route: 048
     Dates: start: 20060216, end: 20060322
  2. ZARATOR [Concomitant]
     Route: 048
     Dates: start: 20031201
  3. SEGURIL [Concomitant]
     Route: 048
     Dates: start: 20031201
  4. OMEPRAZOLE [Concomitant]
     Route: 048
     Dates: start: 20031201
  5. EPREX [Concomitant]
     Route: 042
  6. VENOFER [Concomitant]
     Route: 042
     Dates: start: 20031201
  7. CEFUROXIME [Concomitant]
     Route: 048
     Dates: start: 20060320, end: 20060323
  8. ASPIRIN [Concomitant]
     Route: 048
     Dates: start: 20031201
  9. VITAMIN B [Concomitant]
     Route: 048
     Dates: start: 20031201
  10. LORMETAZEPAM [Concomitant]
     Route: 048
     Dates: start: 20031201
  11. CALCIUM ACETATE [Concomitant]
     Route: 048
     Dates: start: 20060201
  12. CALCIUM CHLORIDE [Concomitant]
     Route: 042
     Dates: start: 20031201

REACTIONS (7)
  - BLISTER [None]
  - BRONCHITIS [None]
  - HYPERSENSITIVITY [None]
  - PRURITUS [None]
  - RASH [None]
  - RASH ERYTHEMATOUS [None]
  - VASCULITIS [None]
